FAERS Safety Report 7880845-6 (Version None)
Quarter: 2011Q4

REPORT INFORMATION
  Report Type: 
  Country: None (occurrence: None)
  Receive Date: 20111101
  Receipt Date: 20111020
  Transmission Date: 20120403
  Serious: Yes (Hospitalization, Other)
  Sender: FDA-Public Use
  Company Number: US-BAXTER-2011BH028225

PATIENT
  Age: 65 Year
  Sex: Male

DRUGS (4)
  1. EXTRANEAL [Suspect]
     Route: 033
     Dates: start: 20101201
  2. DIANEAL [Suspect]
     Indication: PERITONEAL DIALYSIS
     Route: 033
     Dates: start: 20101201
  3. EXTRANEAL [Suspect]
     Indication: PERITONEAL DIALYSIS
     Route: 033
     Dates: start: 20101201
  4. DIANEAL [Suspect]
     Route: 033
     Dates: start: 20101201

REACTIONS (7)
  - CULTURE URINE POSITIVE [None]
  - SEPSIS [None]
  - HYPOGLYCAEMIA [None]
  - UNRESPONSIVE TO STIMULI [None]
  - FALL [None]
  - DEVICE INTERACTION [None]
  - NODULE [None]
